FAERS Safety Report 9557632 (Version 1)
Quarter: 2013Q3

REPORT INFORMATION
  Report Type: Spontaneous
  Country: IT (occurrence: IT)
  Receive Date: 20130926
  Receipt Date: 20130926
  Transmission Date: 20140515
  Serious: Yes (Other)
  Sender: FDA-Public Use
  Company Number: IT-TEVA-433695ISR

PATIENT
  Age: 36 Year
  Sex: Male

DRUGS (5)
  1. CARBAMAZEPINA [Suspect]
     Dosage: 1 DOSAGE FORMS DAILY;
     Route: 048
     Dates: start: 20130831
  2. BROMAZEPAM [Suspect]
     Dosage: 10 GTT DAILY;
     Route: 048
  3. RISPERDAL 2MG [Suspect]
     Dosage: 2 MILLIGRAM DAILY;
     Route: 048
  4. LYRICA 25MG [Suspect]
     Dosage: 75 MILLIGRAM DAILY;
     Route: 048
  5. FLUVOXAMINA EG 50MG [Suspect]
     Dosage: 50 MILLIGRAM DAILY;
     Route: 048

REACTIONS (6)
  - Ataxia [Unknown]
  - Diplopia [Unknown]
  - Dysarthria [Unknown]
  - Sluggishness [Unknown]
  - Vertigo [Unknown]
  - Vomiting [Unknown]
